FAERS Safety Report 9716220 (Version 1)
Quarter: 2013Q4

REPORT INFORMATION
  Report Type: Spontaneous
  Country: US (occurrence: None)
  Receive Date: 20131126
  Receipt Date: 20131126
  Transmission Date: 20140711
  Serious: Yes (Death)
  Sender: FDA-Public Use
  Company Number: None

PATIENT
  Age: 72 Year
  Sex: Male

DRUGS (1)
  1. XELODA [Suspect]
     Indication: COLON CANCER
     Dosage: 2 TABS QAM AND 3 TABS QPM, 7 DAYS ON, 7 DAYS OFF, ORAL
     Route: 048
     Dates: start: 20121120, end: 20131122

REACTIONS (2)
  - Malignant neoplasm progression [None]
  - Unevaluable event [None]
